FAERS Safety Report 4364677-1 (Version None)
Quarter: 2004Q2

REPORT INFORMATION
  Report Type: 
  Country: None (occurrence: None)
  Receive Date: 20040526
  Receipt Date: 20040116
  Transmission Date: 20050107
  Serious: No
  Sender: FDA-Public Use
  Company Number: US-GLAXOSMITHKLINE-A0496287A

PATIENT

DRUGS (2)
  1. FLOLAN [Suspect]
     Indication: ILL-DEFINED DISORDER
     Route: 042
  2. VALPROIC ACID [Suspect]
     Indication: ILL-DEFINED DISORDER
     Route: 065

REACTIONS (2)
  - ALOPECIA [None]
  - HAIR GROWTH ABNORMAL [None]
